FAERS Safety Report 7251948-4 (Version None)
Quarter: 2011Q1

REPORT INFORMATION
  Report Type: 
  Country: None (occurrence: None)
  Receive Date: 20110128
  Receipt Date: 20100112
  Transmission Date: 20110831
  Serious: No
  Sender: FDA-Public Use
  Company Number: US-ABBOTT-10P-163-0618606-00

PATIENT
  Sex: Female
  Weight: 72.64 kg

DRUGS (3)
  1. EPIVIR [Concomitant]
     Indication: HEPATITIS B
  2. HUMIRA [Suspect]
     Indication: PSORIASIS
     Dates: start: 20091201
  3. NORVASC [Concomitant]
     Indication: PRODUCT USED FOR UNKNOWN INDICATION

REACTIONS (2)
  - BREAST DISCHARGE [None]
  - BREAST PAIN [None]
